FAERS Safety Report 4736103-1 (Version None)
Quarter: 2005Q3

REPORT INFORMATION
  Report Type: 
  Country: None (occurrence: None)
  Receive Date: 20050805
  Receipt Date: 20050308
  Transmission Date: 20060218
  Serious: Yes (Disabling)
  Sender: FDA-Public Use
  Company Number: US-MERCK-0503USA01194

PATIENT
  Age: 62 Year
  Sex: Male
  Weight: 109 kg

DRUGS (8)
  1. VYTORIN [Suspect]
     Indication: BLOOD CHOLESTEROL INCREASED
     Route: 048
     Dates: start: 20050303, end: 20050330
  2. VYTORIN [Suspect]
     Route: 048
     Dates: start: 20050101, end: 20050101
  3. ALTACE [Concomitant]
     Route: 048
  4. AVANDAMET [Concomitant]
     Indication: DIABETES MELLITUS NON-INSULIN-DEPENDENT
     Route: 048
  5. SKELAXIN [Concomitant]
     Route: 065
  6. ZANAFLEX [Concomitant]
     Route: 065
  7. [THERAPY UNSPECIFIED] [Concomitant]
     Route: 065
  8. AVANDIA [Concomitant]
     Indication: DIABETES MELLITUS NON-INSULIN-DEPENDENT
     Route: 048

REACTIONS (4)
  - ARTHROPATHY [None]
  - BLOOD DISORDER [None]
  - MUSCLE RIGIDITY [None]
  - MUSCLE SPASMS [None]
